FAERS Safety Report 7116026-3 (Version None)
Quarter: 2010Q4

REPORT INFORMATION
  Report Type: 
  Country: None (occurrence: None)
  Receive Date: 20101122
  Receipt Date: 20101108
  Transmission Date: 20110411
  Serious: Yes (Other)
  Sender: FDA-Public Use
  Company Number: US-AMGEN-KDL438697

PATIENT

DRUGS (6)
  1. ENBREL [Suspect]
     Indication: RHEUMATOID ARTHRITIS
     Dosage: 50 MG, QWK
     Route: 058
  2. METHOTREXATE [Concomitant]
     Indication: RHEUMATOID ARTHRITIS
     Dosage: 20 MG, QWK
     Route: 048
     Dates: start: 20080708
  3. HYDROXYCHLOROQUINE [Concomitant]
     Indication: RHEUMATOID ARTHRITIS
     Dosage: 400 MG, UNK
     Route: 048
     Dates: start: 20070803
  4. PREDNISONE [Concomitant]
     Indication: RHEUMATOID ARTHRITIS
     Dosage: 25 MG, INTERMITTENT
     Route: 048
     Dates: start: 20070712
  5. LEVOXYL [Concomitant]
     Indication: HYPOTHYROIDISM
     Dosage: 0.137 MG, QD
     Route: 048
     Dates: start: 20070101
  6. PREMARIN [Concomitant]
     Indication: MENOPAUSAL SYMPTOMS
     Dosage: 0.9 MG, QD
     Route: 048
     Dates: start: 20070101

REACTIONS (3)
  - ARTHRALGIA [None]
  - BREAST CANCER FEMALE [None]
  - PAIN IN EXTREMITY [None]
